FAERS Safety Report 7246317 (Version 5)
Quarter: 2020Q4

REPORT INFORMATION
  Report Type: Spontaneous
  Country: JP (occurrence: JP)
  Receive Date: 20100114
  Receipt Date: 20201218
  Transmission Date: 20210114
  Serious: Yes (Other)
  Sender: FDA-Public Use
  Company Number: JP-PFIZER INC-2010002605

PATIENT
  Age: 26 Year
  Sex: Female
  Weight: 52 kg

DRUGS (10)
  1. SOLU-MEDROL [Suspect]
     Active Substance: METHYLPREDNISOLONE SODIUM SUCCINATE
     Dosage: 500 MG, 1X/DAY
     Route: 042
     Dates: start: 20090717, end: 20090718
  2. SOLU-MEDROL [Suspect]
     Active Substance: METHYLPREDNISOLONE SODIUM SUCCINATE
     Dosage: 250 MG, 1X/DAY
     Route: 042
     Dates: start: 20090710, end: 20090712
  3. BARACLUDE [Concomitant]
     Active Substance: ENTECAVIR
     Indication: ACUTE HEPATITIS B
     Dosage: 0.5 MG, 1X/DAY
     Dates: start: 20090701, end: 20090812
  4. INTERFERON [Concomitant]
     Active Substance: INTERFERON
     Indication: ACUTE HEPATITIS B
     Dosage: 3.0X10 6 UNIT, 1X/DAY
  5. SOLU-MEDROL [Suspect]
     Active Substance: METHYLPREDNISOLONE SODIUM SUCCINATE
     Dosage: 750 MG, 1X/DAY
     Route: 042
     Dates: start: 20090704, end: 20090706
  6. SOLU-MEDROL [Suspect]
     Active Substance: METHYLPREDNISOLONE SODIUM SUCCINATE
     Indication: ACUTE HEPATITIS B
     Dosage: 1000 MG, 1X/DAY
     Route: 042
     Dates: start: 20090701, end: 20090703
  7. NEORAL [Suspect]
     Active Substance: CYCLOSPORINE
     Indication: ACUTE HEPATITIS B
     Dosage: 25 MG, 2X/DAY
     Route: 048
     Dates: start: 20090730, end: 20090807
  8. SANDIMUN [Suspect]
     Active Substance: CYCLOSPORINE
     Indication: ACUTE HEPATITIS B
     Dosage: 12.5 MG, 1X/DAY
     Route: 042
     Dates: start: 20090701, end: 20090706
  9. SANDIMUN [Suspect]
     Active Substance: CYCLOSPORINE
     Dosage: 25 MG, 1X/DAY
     Dates: start: 20090707, end: 20090714
  10. SOLU-MEDROL [Suspect]
     Active Substance: METHYLPREDNISOLONE SODIUM SUCCINATE
     Dosage: 500 MG, 1X/DAY
     Route: 042
     Dates: start: 20090707, end: 20090709

REACTIONS (1)
  - Pneumatosis intestinalis [Recovered/Resolved]

NARRATIVE: CASE EVENT DATE: 20090718
